FAERS Safety Report 18489291 (Version 1)
Quarter: 2020Q4

REPORT INFORMATION
  Report Type: Spontaneous
  Country: US (occurrence: US)
  Receive Date: 20201111
  Receipt Date: 20201111
  Transmission Date: 20210114
  Serious: No
  Sender: FDA-Public Use
  Company Number: US-SA-2020SA313785

PATIENT

DRUGS (2)
  1. PREDNISONE. [Concomitant]
     Active Substance: PREDNISONE
     Route: 065
  2. DOCETAXEL WINTHROP [Suspect]
     Active Substance: DOCETAXEL
     Indication: BREAST CANCER
     Dosage: DRUG STRUCTURE DOSAGE : UNKNOWN DRUG INTERVAL DOSAGE : TWICE DRUG TREATMENT DURATION: NA

REACTIONS (7)
  - Dyspnoea [Unknown]
  - Body temperature increased [Unknown]
  - Dysuria [Unknown]
  - Abdominal pain [Unknown]
  - Pseudoallergic reaction [Unknown]
  - Colitis [Unknown]
  - Erythema [Unknown]
